FAERS Safety Report 14983419 (Version 1)
Quarter: 2018Q2

REPORT INFORMATION
  Report Type: Spontaneous
  Country: US (occurrence: US)
  Receive Date: 20180517
  Receipt Date: 20180517
  Transmission Date: 20180711
  Serious: Yes (Disabling)
  Sender: FDA-Public Use
  Company Number: None

PATIENT
  Age: 54 Year
  Sex: Male
  Weight: 65.25 kg

DRUGS (1)
  1. LEVAFLOXACIN [Suspect]
     Active Substance: LEVOFLOXACIN
     Indication: PROSTATITIS
     Dosage: ?          QUANTITY:1 DF DOSAGE FORM;?
     Route: 048
     Dates: start: 20180328, end: 20180401

REACTIONS (6)
  - Chills [None]
  - Headache [None]
  - Pain in extremity [None]
  - Palpitations [None]
  - Tremor [None]
  - Arthralgia [None]

NARRATIVE: CASE EVENT DATE: 20180401
